FAERS Safety Report 8541752-9 (Version None)
Quarter: 2012Q3

REPORT INFORMATION
  Report Type: 
  Country: None (occurrence: None)
  Receive Date: 20120726
  Receipt Date: 20110830
  Transmission Date: 20120928
  Serious: No
  Sender: FDA-Public Use
  Company Number: US-ASTRAZENECA-2011SE52040

PATIENT
  Age: 66 Year
  Sex: Female
  Weight: 83 kg

DRUGS (7)
  1. MELOXICAM [Concomitant]
  2. SYNTHROID [Concomitant]
  3. CYTALOPRAM HYDROBROMIDE [Concomitant]
  4. HYDROCODONE BITARTRATE [Concomitant]
  5. LORANZEPAM [Concomitant]
  6. SEROQUEL [Suspect]
     Indication: DEPRESSION
     Route: 048
     Dates: start: 20110301
  7. ZYRTEC [Concomitant]

REACTIONS (1)
  - DEMENTIA [None]
